FAERS Safety Report 18203133 (Version 1)
Quarter: 2020Q3

REPORT INFORMATION
  Report Type: Spontaneous
  Country: US (occurrence: US)
  Receive Date: 20200827
  Receipt Date: 20200827
  Transmission Date: 20201103
  Serious: No
  Sender: FDA-Public Use
  Company Number: US-MYLANLABS-2020M1072028

PATIENT
  Sex: Male
  Weight: 89 kg

DRUGS (1)
  1. EMSAM [Suspect]
     Active Substance: SELEGILINE
     Indication: DEPRESSION
     Dosage: ONCE A DAY
     Route: 062

REACTIONS (3)
  - Application site vesicles [Not Recovered/Not Resolved]
  - Balance disorder [Not Recovered/Not Resolved]
  - Application site erythema [Not Recovered/Not Resolved]
